FAERS Safety Report 22113693 (Version 1)
Quarter: 2023Q1

REPORT INFORMATION
  Report Type: Spontaneous
  Country: US (occurrence: US)
  Receive Date: 20230320
  Receipt Date: 20230320
  Transmission Date: 20230417
  Serious: No
  Sender: FDA-Public Use
  Company Number: US-AMGEN-USASP2023045218

PATIENT
  Age: 77 Year
  Sex: Female
  Weight: 55.8 kg

DRUGS (4)
  1. NEULASTA [Suspect]
     Active Substance: PEGFILGRASTIM
     Indication: Endometrial cancer
     Dosage: UNK
     Route: 065
  2. NEULASTA [Suspect]
     Active Substance: PEGFILGRASTIM
     Indication: Ovarian cancer
     Dosage: UNK
     Route: 065
  3. NEULASTA [Suspect]
     Active Substance: PEGFILGRASTIM
     Indication: Fallopian tube cancer
  4. NEULASTA [Suspect]
     Active Substance: PEGFILGRASTIM
     Indication: Off label use

REACTIONS (4)
  - Unintentional medical device removal [Unknown]
  - Drug dose omission by device [Unknown]
  - Device use error [Unknown]
  - Off label use [Unknown]

NARRATIVE: CASE EVENT DATE: 20230109
